FAERS Safety Report 7732818-1 (Version None)
Quarter: 2011Q3

REPORT INFORMATION
  Report Type: 
  Country: None (occurrence: None)
  Receive Date: 20110907
  Receipt Date: 20110825
  Transmission Date: 20111222
  Serious: Yes (Other)
  Sender: FDA-Public Use
  Company Number: GB-ALVOGEN-2011AL000054

PATIENT
  Age: 42 Year
  Sex: Female

DRUGS (2)
  1. FOLIC ACID [Concomitant]
  2. NITROFURANTOIN [Suspect]
     Indication: URINARY TRACT INFECTION

REACTIONS (1)
  - AUTOIMMUNE HEPATITIS [None]
